FAERS Safety Report 11528918 (Version 1)
Quarter: 2015Q3

REPORT INFORMATION
  Report Type: Spontaneous
  Country: US (occurrence: US)
  Receive Date: 20150921
  Receipt Date: 20150921
  Transmission Date: 20151125
  Serious: No
  Sender: FDA-Public Use
  Company Number: US-PFIZER INC-2015304069

PATIENT
  Sex: Male

DRUGS (2)
  1. NEURONTIN [Suspect]
     Active Substance: GABAPENTIN
     Indication: NEURALGIA
     Dosage: UNK
  2. NEURONTIN [Suspect]
     Active Substance: GABAPENTIN
     Indication: NERVE INJURY

REACTIONS (1)
  - Drug ineffective for unapproved indication [Not Recovered/Not Resolved]
